FAERS Safety Report 18772078 (Version 1)
Quarter: 2021Q1

REPORT INFORMATION
  Report Type: Spontaneous
  Country: TW (occurrence: TW)
  Receive Date: 20210122
  Receipt Date: 20210122
  Transmission Date: 20210419
  Serious: Yes (Death, Other)
  Sender: FDA-Public Use
  Company Number: TW-SA-2020SA301853

PATIENT
  Age: 6 Month
  Sex: Male
  Weight: 5.4 kg

DRUGS (2)
  1. MYOZYME [Suspect]
     Active Substance: ALGLUCOSIDASE ALFA
     Dosage: 3 DF, QOW
     Route: 042
     Dates: start: 20201020, end: 20201020
  2. MYOZYME [Suspect]
     Active Substance: ALGLUCOSIDASE ALFA
     Dosage: 2.5 KG/VIAL, QOW
     Route: 042
     Dates: end: 20201006

REACTIONS (2)
  - Multiple organ dysfunction syndrome [Fatal]
  - Disease progression [Unknown]

NARRATIVE: CASE EVENT DATE: 20201023
